FAERS Safety Report 9717540 (Version 2)
Quarter: 2015Q3

REPORT INFORMATION
  Report Type: Spontaneous
  Country: US (occurrence: US)
  Receive Date: 20131127
  Receipt Date: 20150804
  Transmission Date: 20151125
  Serious: Yes (Hospitalization)
  Sender: FDA-Public Use
  Company Number: US-GILEAD-2009-0020827

PATIENT
  Age: 73 Year
  Sex: Male
  Weight: 72.57 kg

DRUGS (10)
  1. COREG [Concomitant]
     Active Substance: CARVEDILOL
  2. PRANDIN [Concomitant]
     Active Substance: REPAGLINIDE
  3. LETAIRIS [Suspect]
     Active Substance: AMBRISENTAN
     Route: 048
     Dates: start: 20090128, end: 200902
  4. COUMADIN [Concomitant]
     Active Substance: WARFARIN SODIUM
  5. BENADRYL [Concomitant]
     Active Substance: DIPHENHYDRAMINE HYDROCHLORIDE
  6. K-DUR [Concomitant]
     Active Substance: POTASSIUM CHLORIDE
  7. ZANTAC [Concomitant]
     Active Substance: RANITIDINE HYDROCHLORIDE
  8. ZOCOR [Concomitant]
     Active Substance: SIMVASTATIN
  9. ZAROXOLYN [Concomitant]
     Active Substance: METOLAZONE
  10. LETAIRIS [Suspect]
     Active Substance: AMBRISENTAN
     Indication: PULMONARY ARTERIAL HYPERTENSION
     Route: 048
     Dates: start: 20090224, end: 20090309

REACTIONS (1)
  - Oedema [Not Recovered/Not Resolved]

NARRATIVE: CASE EVENT DATE: 20090228
